FAERS Safety Report 19647345 (Version 4)
Quarter: 2021Q4

REPORT INFORMATION
  Report Type: Report from Study
  Country: US (occurrence: US)
  Receive Date: 20210802
  Receipt Date: 20211025
  Transmission Date: 20220303
  Serious: Yes (Other)
  Sender: FDA-Public Use
  Company Number: US-PFIZER INC-2021383095

PATIENT
  Age: 78 Year
  Sex: Female

DRUGS (4)
  1. IBRANCE [Suspect]
     Active Substance: PALBOCICLIB
     Indication: Breast cancer female
     Dosage: 125 MG, CYCLIC (ONCE DAILY; 21 DAYS ON, 7 DAYS OFF)
     Route: 048
     Dates: start: 20210401, end: 20210625
  2. IBRANCE [Suspect]
     Active Substance: PALBOCICLIB
     Dosage: 125 MG, CYCLIC (1 TABLET DAILY 21 DAYS ON AND 7 DAYS OFF)
     Route: 048
     Dates: start: 20210730
  3. IBRANCE [Suspect]
     Active Substance: PALBOCICLIB
     Dosage: 125 MG, CYCLIC (1 TABLET DAILY FOR 21 DAYS ON, 7 DAYS OFF)
     Route: 048
     Dates: start: 20210401, end: 20210917
  4. FASLODEX [Concomitant]
     Active Substance: FULVESTRANT
     Dosage: UNK
     Dates: start: 2021

REACTIONS (19)
  - Deep vein thrombosis [Unknown]
  - Neutropenia [Recovered/Resolved]
  - Renal impairment [Unknown]
  - Urinary tract obstruction [Recovering/Resolving]
  - Red blood cell count abnormal [Unknown]
  - Platelet count abnormal [Unknown]
  - Anaemia [Unknown]
  - Nausea [Recovered/Resolved]
  - Pruritus [Not Recovered/Not Resolved]
  - Oral mucosal blistering [Recovered/Resolved]
  - Joint swelling [Unknown]
  - Alopecia [Not Recovered/Not Resolved]
  - White blood cell count decreased [Unknown]
  - Skin disorder [Unknown]
  - Weight decreased [Unknown]
  - Glomerular filtration rate decreased [Unknown]
  - Tooth abscess [Unknown]
  - Blood glucose increased [Unknown]
  - Accidental overdose [Unknown]

NARRATIVE: CASE EVENT DATE: 20210101
